FAERS Safety Report 12362447 (Version 1)
Quarter: 2016Q2

REPORT INFORMATION
  Report Type: Spontaneous
  Country: US (occurrence: US)
  Receive Date: 20160512
  Receipt Date: 20160512
  Transmission Date: 20160815
  Serious: No
  Sender: FDA-Public Use
  Company Number: US-TOLMAR INC.-1052050

PATIENT
  Sex: Male

DRUGS (1)
  1. DICLOFENAC SODIUM GEL, 3% [Suspect]
     Active Substance: DICLOFENAC SODIUM
     Route: 061

REACTIONS (1)
  - Drug effect variable [Unknown]
